FAERS Safety Report 4459820-X (Version None)
Quarter: 2004Q3

REPORT INFORMATION
  Report Type: 
  Country: None (occurrence: None)
  Receive Date: 20040928
  Receipt Date: 20040220
  Transmission Date: 20050211
  Serious: No
  Sender: FDA-Public Use
  Company Number: US-BRISTOL-MYERS SQUIBB COMPANY-12513735

PATIENT
  Age: 81 Year
  Sex: Female

DRUGS (1)
  1. TRIMOX [Suspect]
     Indication: PHARYNGOLARYNGEAL PAIN
     Dates: start: 20031223, end: 20031225

REACTIONS (4)
  - COUGH [None]
  - DRUG INEFFECTIVE [None]
  - DYSPNOEA [None]
  - SWELLING [None]
